FAERS Safety Report 7235133-8 (Version None)
Quarter: 2011Q1

REPORT INFORMATION
  Report Type: 
  Country: None (occurrence: None)
  Receive Date: 20110120
  Receipt Date: 20110118
  Transmission Date: 20110831
  Serious: Yes (Death, Other)
  Sender: FDA-Public Use
  Company Number: US-GENZYME-CAMP-1001271

PATIENT

DRUGS (8)
  1. AMOXICILLIN [Concomitant]
     Indication: ANTIBIOTIC PROPHYLAXIS
     Dosage: AFTER TRANSPLANTATION
     Route: 065
  2. PENTAMIDINE ISETHIONATE [Concomitant]
     Indication: ANTIFUNGAL PROPHYLAXIS
     Route: 065
  3. CAMPATH [Suspect]
     Indication: BONE MARROW CONDITIONING REGIMEN
     Dosage: UNK
     Route: 065
  4. IMMUNE GLOBULIN NOS [Concomitant]
     Indication: PRODUCT USED FOR UNKNOWN INDICATION
     Route: 042
  5. GRANULOCYTE COLONY STIMULATING FACTOR [Concomitant]
     Indication: PRODUCT USED FOR UNKNOWN INDICATION
     Dosage: GIVEN UNTIL NEUTROPHIL RECOVERY
     Route: 065
  6. FLUDARABINE [Suspect]
     Indication: BONE MARROW CONDITIONING REGIMEN
     Dosage: UNK
     Route: 065
  7. METHYLPREDNISOLONE [Concomitant]
     Indication: PROPHYLAXIS AGAINST GRAFT VERSUS HOST DISEASE
     Route: 065
  8. MELPHALAN [Suspect]
     Indication: BONE MARROW CONDITIONING REGIMEN
     Dosage: UNK
     Route: 065

REACTIONS (15)
  - ABSCESS [None]
  - PNEUMONIA [None]
  - HUMAN HERPESVIRUS 6 INFECTION [None]
  - ACUTE GRAFT VERSUS HOST DISEASE [None]
  - CHRONIC GRAFT VERSUS HOST DISEASE [None]
  - HERPES SIMPLEX [None]
  - EPSTEIN-BARR VIRUS INFECTION [None]
  - ADENOVIRUS INFECTION [None]
  - VARICELLA [None]
  - DEATH [None]
  - TOXOPLASMOSIS [None]
  - RESPIRATORY SYNCYTIAL VIRUS INFECTION [None]
  - CYTOMEGALOVIRUS INFECTION [None]
  - SEPSIS [None]
  - GRAFT VERSUS HOST DISEASE [None]
